FAERS Safety Report 15704053 (Version 1)
Quarter: 2018Q4

REPORT INFORMATION
  Report Type: Spontaneous
  Country: US (occurrence: US)
  Receive Date: 20181210
  Receipt Date: 20181210
  Transmission Date: 20190205
  Serious: No
  Sender: FDA-Public Use
  Company Number: US-MYLANLABS-2018M1088552

PATIENT

DRUGS (3)
  1. HCTZ [Concomitant]
     Active Substance: HYDROCHLOROTHIAZIDE
  2. AMLODIPINE BESYLATE AND VALSARTAN [Suspect]
     Active Substance: AMLODIPINE BESYLATE\VALSARTAN
     Indication: HYPERTENSION
     Dosage: UNK
     Route: 048
     Dates: start: 20181030
  3. BYSTOLIC [Concomitant]
     Active Substance: NEBIVOLOL HYDROCHLORIDE

REACTIONS (1)
  - Recalled product administered [Not Recovered/Not Resolved]
